FAERS Safety Report 6011410-3 (Version None)
Quarter: 2008Q4

REPORT INFORMATION
  Report Type: 
  Country: None (occurrence: None)
  Receive Date: 20081218
  Receipt Date: 20000107
  Transmission Date: 20090506
  Serious: Yes (Death, Hospitalization, Other)
  Sender: FDA-Public Use
  Company Number: FR-ROCHE-221946

PATIENT
  Sex: Female
  Weight: 60 kg

DRUGS (14)
  1. CELLCEPT [Suspect]
     Route: 048
     Dates: start: 19991115
  2. CELLCEPT [Interacting]
     Route: 048
     Dates: start: 19991030, end: 19991106
  3. CELLCEPT [Interacting]
     Route: 048
     Dates: start: 19990909, end: 19991015
  4. CYMEVAN [Interacting]
     Route: 042
     Dates: start: 19990930, end: 19991024
  5. SOLUPRED [Concomitant]
     Route: 048
     Dates: start: 19990902
  6. PROGRAF [Concomitant]
     Route: 048
     Dates: start: 19990913
  7. SAL [Concomitant]
  8. ZELITREX [Concomitant]
  9. CLIVARINE [Concomitant]
  10. DI-ANTALVIC [Concomitant]
  11. UMULINE [Concomitant]
  12. CLAFORAN [Concomitant]
  13. PYOSTACINE [Concomitant]
  14. FOSFOMYCINE [Concomitant]

REACTIONS (7)
  - AGRANULOCYTOSIS [None]
  - DEATH [None]
  - DRUG INTERACTION [None]
  - PANCYTOPENIA [None]
  - PSEUDOMONAS INFECTION [None]
  - RESPIRATORY DISTRESS [None]
  - STAPHYLOCOCCAL INFECTION [None]
